FAERS Safety Report 7685225-4 (Version None)
Quarter: 2011Q3

REPORT INFORMATION
  Report Type: 
  Country: None (occurrence: None)
  Receive Date: 20110816
  Receipt Date: 20110803
  Transmission Date: 20111222
  Serious: Yes (Hospitalization, Other)
  Sender: FDA-Public Use
  Company Number: US-ELI_LILLY_AND_COMPANY-US201108002204

PATIENT
  Sex: Female

DRUGS (1)
  1. HUMATROPE [Suspect]
     Indication: ADRENAL INSUFFICIENCY
     Dosage: 0.8 MG, UNKNOWN
     Route: 065

REACTIONS (2)
  - THINKING ABNORMAL [None]
  - CEREBROVASCULAR ACCIDENT [None]
